FAERS Safety Report 6046838-9 (Version None)
Quarter: 2009Q1

REPORT INFORMATION
  Report Type: 
  Country: None (occurrence: None)
  Receive Date: 20090122
  Receipt Date: 20090116
  Transmission Date: 20090719
  Serious: Yes (Hospitalization)
  Sender: FDA-Public Use
  Company Number: A0764356A

PATIENT
  Age: 53 Year
  Sex: Male
  Weight: 120.5 kg

DRUGS (8)
  1. AVANDIA [Suspect]
     Route: 048
     Dates: start: 20010101, end: 20040701
  2. INDERAL [Concomitant]
     Dates: start: 19900101, end: 20070101
  3. LYRICA [Concomitant]
  4. IRON SULFATETHIAMIN COMPOUND TAB [Concomitant]
  5. LIPITOR [Concomitant]
  6. TRICOR [Concomitant]
  7. ACTOS [Concomitant]
  8. ALLOPURINOL [Concomitant]

REACTIONS (3)
  - CARDIAC FAILURE CONGESTIVE [None]
  - CEREBROVASCULAR ACCIDENT [None]
  - MYOCARDIAL INFARCTION [None]
